FAERS Safety Report 19694660 (Version 1)
Quarter: 2021Q3

REPORT INFORMATION
  Report Type: Spontaneous
  Country: CA (occurrence: CA)
  Receive Date: 20210813
  Receipt Date: 20210813
  Transmission Date: 20211014
  Serious: Yes (Other)
  Sender: FDA-Public Use
  Company Number: CA-TEVA-2021-CA-1939626

PATIENT
  Age: 61 Year
  Sex: Female

DRUGS (7)
  1. CYMBALTA [Suspect]
     Active Substance: DULOXETINE HYDROCHLORIDE
     Indication: PAIN
     Route: 065
  2. CIPROFLOXACIN HYDROCHLORIDE. [Suspect]
     Active Substance: CIPROFLOXACIN HYDROCHLORIDE
     Indication: NEPHROLITHIASIS
     Route: 065
  3. ACCUTANE [Suspect]
     Active Substance: ISOTRETINOIN
     Indication: EAR DISCOMFORT
     Route: 065
  4. BELIMUMAB [Suspect]
     Active Substance: BELIMUMAB
     Indication: SYSTEMIC LUPUS ERYTHEMATOSUS
     Route: 065
  5. CYMBALTA [Suspect]
     Active Substance: DULOXETINE HYDROCHLORIDE
     Indication: PRODUCT USED FOR UNKNOWN INDICATION
     Route: 065
  6. OLMETEC [Suspect]
     Active Substance: OLMESARTAN MEDOXOMIL
     Indication: BLOOD PRESSURE MEASUREMENT
     Route: 048
  7. CLARITHROMYCIN. [Suspect]
     Active Substance: CLARITHROMYCIN
     Indication: NEPHROLITHIASIS
     Route: 065

REACTIONS (20)
  - Hypersomnia [Recovered/Resolved]
  - Renal disorder [Recovered/Resolved]
  - Skin induration [Recovered/Resolved]
  - Varicose vein [Recovered/Resolved]
  - Product dose omission issue [Recovered/Resolved]
  - Personality change due to a general medical condition [Recovered/Resolved]
  - Blood pressure increased [Recovered/Resolved]
  - Hand deformity [Recovered/Resolved]
  - Loss of personal independence in daily activities [Recovered/Resolved]
  - Nephrolithiasis [Recovered/Resolved]
  - Pain [Recovered/Resolved]
  - Drug ineffective [Recovered/Resolved]
  - Blood pressure decreased [Recovered/Resolved]
  - Blood cholesterol [Recovered/Resolved]
  - Kidney infection [Recovered/Resolved]
  - Urine abnormality [Recovered/Resolved]
  - Walking aid user [Recovered/Resolved]
  - Arthritis [Recovered/Resolved]
  - Joint dislocation [Recovered/Resolved]
  - Vein disorder [Recovered/Resolved]
